FAERS Safety Report 7701278-9 (Version None)
Quarter: 2011Q3

REPORT INFORMATION
  Report Type: 
  Country: None (occurrence: None)
  Receive Date: 20110817
  Receipt Date: 20110808
  Transmission Date: 20111222
  Serious: Yes (Other)
  Sender: FDA-Public Use
  Company Number: 980110

PATIENT
  Sex: Female

DRUGS (1)
  1. PAMIDRONATE DISODIUM [Suspect]
     Indication: HYPERCALCAEMIA
     Dosage: 90 MG MILLIGRAM(S)

REACTIONS (4)
  - HYPOTENSION [None]
  - SHOCK [None]
  - PYREXIA [None]
  - FALL [None]
